FAERS Safety Report 20035926 (Version 3)
Quarter: 2021Q4

REPORT INFORMATION
  Report Type: Spontaneous
  Country: IT (occurrence: IT)
  Receive Date: 20211105
  Receipt Date: 20211127
  Transmission Date: 20220303
  Serious: Yes (Death, Other)
  Sender: FDA-Public Use
  Company Number: IT-CELLTRION INC.-2021IT014712

PATIENT

DRUGS (46)
  1. RITUXIMAB [Suspect]
     Active Substance: RITUXIMAB
     Indication: Primary cardiac lymphoma
     Dosage: SINGLE COURSE OF DOSE ADAPTED MATRIX CHEMOTHERAPY
     Route: 065
  2. RITUXIMAB [Suspect]
     Active Substance: RITUXIMAB
     Indication: Diffuse large B-cell lymphoma
     Dosage: R-COMP SCHEME FOR SIX COURSES, EVERY 21 DAYS
  3. RITUXIMAB [Suspect]
     Active Substance: RITUXIMAB
     Indication: Chemotherapy
     Dosage: R-COMP SCHEME FOR SIX COURSES, EVERY 21 DAYS
  4. RITUXIMAB [Suspect]
     Active Substance: RITUXIMAB
     Dosage: R-COMP SCHEME FOR SIX COURSES, EVERY 21 DAYS
  5. RITUXIMAB [Suspect]
     Active Substance: RITUXIMAB
     Dosage: R-COMP SCHEME FOR SIX COURSES, EVERY 21 DAYS
  6. RITUXIMAB [Suspect]
     Active Substance: RITUXIMAB
     Dosage: R-COMP SCHEME FOR SIX COURSES, EVERY 21 DAYS
  7. RITUXIMAB [Suspect]
     Active Substance: RITUXIMAB
     Dosage: R-COMP SCHEME FOR SIX COURSES, EVERY 21 DAYS
  8. RITUXIMAB [Suspect]
     Active Substance: RITUXIMAB
     Dosage: TWO ADMINISTRATIONS ALONE (SEVENTH)
  9. RITUXIMAB [Suspect]
     Active Substance: RITUXIMAB
     Dosage: UNK
     Route: 065
  10. CYTARABINE [Suspect]
     Active Substance: CYTARABINE
     Indication: Primary cardiac lymphoma
     Dosage: SINGLE COURSE OF DOSE ADAPTED MATRIX CHEMOTHERAPY
     Route: 065
  11. CYTARABINE [Suspect]
     Active Substance: CYTARABINE
     Indication: Diffuse large B-cell lymphoma
     Dosage: UNK
     Route: 065
  12. CYTARABINE [Suspect]
     Active Substance: CYTARABINE
     Indication: Chemotherapy
  13. THIOTEPA [Suspect]
     Active Substance: THIOTEPA
     Indication: Primary cardiac lymphoma
     Dosage: SINGLE COURSE OF DOSE ADAPTED MATRIX CHEMOTHERAPY
     Route: 065
  14. THIOTEPA [Suspect]
     Active Substance: THIOTEPA
     Indication: Diffuse large B-cell lymphoma
     Dosage: UNK
     Route: 065
  15. THIOTEPA [Suspect]
     Active Substance: THIOTEPA
     Indication: Chemotherapy
  16. METHOTREXATE [Suspect]
     Active Substance: METHOTREXATE
     Indication: Primary cardiac lymphoma
     Dosage: SINGLE COURSE OF DOSE ADAPTED MATRIX CHEMOTHERAPY
     Route: 065
  17. METHOTREXATE [Suspect]
     Active Substance: METHOTREXATE
     Indication: Diffuse large B-cell lymphoma
     Dosage: UNK
     Route: 065
  18. METHOTREXATE [Suspect]
     Active Substance: METHOTREXATE
     Indication: Chemotherapy
  19. DOXORUBICIN HYDROCHLORIDE [Concomitant]
     Active Substance: DOXORUBICIN HYDROCHLORIDE
     Indication: Primary cardiac lymphoma
     Dosage: R-COMP SCHEME FOR SIX COURSES, EVERY 21 DAYS
  20. DOXORUBICIN HYDROCHLORIDE [Concomitant]
     Active Substance: DOXORUBICIN HYDROCHLORIDE
     Indication: Diffuse large B-cell lymphoma
     Dosage: R-COMP SCHEME FOR SIX COURSES, EVERY 21 DAYS
  21. DOXORUBICIN HYDROCHLORIDE [Concomitant]
     Active Substance: DOXORUBICIN HYDROCHLORIDE
     Dosage: R-COMP SCHEME FOR SIX COURSES, EVERY 21 DAYS
  22. DOXORUBICIN HYDROCHLORIDE [Concomitant]
     Active Substance: DOXORUBICIN HYDROCHLORIDE
     Dosage: R-COMP SCHEME FOR SIX COURSES, EVERY 21 DAYS
  23. DOXORUBICIN HYDROCHLORIDE [Concomitant]
     Active Substance: DOXORUBICIN HYDROCHLORIDE
     Dosage: R-COMP SCHEME FOR SIX COURSES, EVERY 21 DAYS
  24. DOXORUBICIN HYDROCHLORIDE [Concomitant]
     Active Substance: DOXORUBICIN HYDROCHLORIDE
     Dosage: R-COMP SCHEME FOR SIX COURSES, EVERY 21 DAYS
  25. DOXORUBICIN HYDROCHLORIDE [Concomitant]
     Active Substance: DOXORUBICIN HYDROCHLORIDE
     Dosage: EVERY 21 DAYS
  26. VINCRISTINE [Concomitant]
     Active Substance: VINCRISTINE
     Indication: Primary cardiac lymphoma
     Dosage: R-COMP SCHEME FOR SIX COURSES, EVERY 21 DAYS
  27. VINCRISTINE [Concomitant]
     Active Substance: VINCRISTINE
     Indication: Diffuse large B-cell lymphoma
     Dosage: R-COMP SCHEME FOR SIX COURSES, EVERY 21 DAYS
  28. VINCRISTINE [Concomitant]
     Active Substance: VINCRISTINE
     Dosage: R-COMP SCHEME FOR SIX COURSES, EVERY 21 DAYS
  29. VINCRISTINE [Concomitant]
     Active Substance: VINCRISTINE
     Dosage: R-COMP SCHEME FOR SIX COURSES, EVERY 21 DAYS
  30. VINCRISTINE [Concomitant]
     Active Substance: VINCRISTINE
     Dosage: R-COMP SCHEME FOR SIX COURSES, EVERY 21 DAYS
  31. VINCRISTINE [Concomitant]
     Active Substance: VINCRISTINE
     Dosage: R-COMP SCHEME FOR SIX COURSES, EVERY 21 DAYS
  32. VINCRISTINE [Concomitant]
     Active Substance: VINCRISTINE
     Dosage: EVERY 21 DAYS
  33. CYCLOPHOSPHAMIDE [Concomitant]
     Active Substance: CYCLOPHOSPHAMIDE
     Indication: Primary cardiac lymphoma
     Dosage: R-COMP SCHEME FOR SIX COURSES, EVERY 21 DAYS
  34. CYCLOPHOSPHAMIDE [Concomitant]
     Active Substance: CYCLOPHOSPHAMIDE
     Indication: Diffuse large B-cell lymphoma
     Dosage: R-COMP SCHEME FOR SIX COURSES, EVERY 21 DAYS
  35. CYCLOPHOSPHAMIDE [Concomitant]
     Active Substance: CYCLOPHOSPHAMIDE
     Dosage: R-COMP SCHEME FOR SIX COURSES, EVERY 21 DAYS
  36. CYCLOPHOSPHAMIDE [Concomitant]
     Active Substance: CYCLOPHOSPHAMIDE
     Dosage: R-COMP SCHEME FOR SIX COURSES, EVERY 21 DAYS
  37. CYCLOPHOSPHAMIDE [Concomitant]
     Active Substance: CYCLOPHOSPHAMIDE
     Dosage: R-COMP SCHEME FOR SIX COURSES, EVERY 21 DAYS
  38. CYCLOPHOSPHAMIDE [Concomitant]
     Active Substance: CYCLOPHOSPHAMIDE
     Dosage: R-COMP SCHEME FOR SIX COURSES, EVERY 21 DAYS
  39. CYCLOPHOSPHAMIDE [Concomitant]
     Active Substance: CYCLOPHOSPHAMIDE
     Dosage: EVERY 21 DAYS
  40. PREDNISONE [Concomitant]
     Active Substance: PREDNISONE
     Indication: Primary cardiac lymphoma
     Dosage: R-COMP SCHEME FOR SIX COURSES, EVERY 21 DAYS
  41. PREDNISONE [Concomitant]
     Active Substance: PREDNISONE
     Indication: Diffuse large B-cell lymphoma
     Dosage: R-COMP SCHEME FOR SIX COURSES, EVERY 21 DAYS
  42. PREDNISONE [Concomitant]
     Active Substance: PREDNISONE
     Dosage: R-COMP SCHEME FOR SIX COURSES, EVERY 21 DAYS
  43. PREDNISONE [Concomitant]
     Active Substance: PREDNISONE
     Dosage: R-COMP SCHEME FOR SIX COURSES, EVERY 21 DAYS
  44. PREDNISONE [Concomitant]
     Active Substance: PREDNISONE
     Dosage: R-COMP SCHEME FOR SIX COURSES, EVERY 21 DAYS
  45. PREDNISONE [Concomitant]
     Active Substance: PREDNISONE
     Dosage: R-COMP SCHEME FOR SIX COURSES, EVERY 21 DAYS
  46. PREDNISONE [Concomitant]
     Active Substance: PREDNISONE
     Dosage: EVERY 21 DAYS

REACTIONS (5)
  - Disease progression [Fatal]
  - Central nervous system lymphoma [Unknown]
  - Acute kidney injury [Unknown]
  - Neoplasm recurrence [Unknown]
  - Drug intolerance [Unknown]
